FAERS Safety Report 24794613 (Version 1)
Quarter: 2024Q4

REPORT INFORMATION
  Report Type: Spontaneous
  Country: US (occurrence: None)
  Receive Date: 20241230
  Receipt Date: 20241230
  Transmission Date: 20250115
  Serious: Yes (Hospitalization, Other)
  Sender: Public
  Company Number: None

PATIENT
  Age: 26 Year
  Sex: Female
  Weight: 67.05 kg

DRUGS (1)
  1. TRETINOIN [Suspect]
     Active Substance: TRETINOIN
     Dates: start: 20241224, end: 20241226

REACTIONS (2)
  - Dizziness [None]
  - Coordination abnormal [None]

NARRATIVE: CASE EVENT DATE: 20241226
